FAERS Safety Report 8017927-4 (Version None)
Quarter: 2012Q1

REPORT INFORMATION
  Report Type: 
  Country: None (occurrence: None)
  Receive Date: 20120103
  Receipt Date: 20111222
  Transmission Date: 20120608
  Serious: Yes (Other)
  Sender: FDA-Public Use
  Company Number: US-JNJFOC-20111211517

PATIENT
  Sex: Male
  Weight: 128.37 kg

DRUGS (2)
  1. PREDNISONE TAB [Concomitant]
     Indication: PROSTATE CANCER
     Route: 048
     Dates: start: 20110101
  2. ZYTIGA [Suspect]
     Indication: PROSTATE CANCER
     Route: 048
     Dates: start: 20110101

REACTIONS (7)
  - COUGH [None]
  - OEDEMA PERIPHERAL [None]
  - WEIGHT INCREASED [None]
  - FLUID RETENTION [None]
  - PAIN IN EXTREMITY [None]
  - PROSTATIC SPECIFIC ANTIGEN INCREASED [None]
  - MUSCULAR WEAKNESS [None]
